FAERS Safety Report 23488200 (Version 1)
Quarter: 2024Q1

REPORT INFORMATION
  Report Type: Spontaneous
  Country: US (occurrence: None)
  Receive Date: 20240206
  Receipt Date: 20240206
  Transmission Date: 20240409
  Serious: Yes (Hospitalization)
  Sender: FDA-Public Use
  Company Number: None

PATIENT
  Sex: Female

DRUGS (23)
  1. TACROLIMUS [Suspect]
     Active Substance: TACROLIMUS
     Indication: Renal transplant
     Route: 048
     Dates: start: 20230304
  2. AJOVY [Concomitant]
  3. ALPRAZOLAM [Concomitant]
     Active Substance: ALPRAZOLAM
  4. ATORVASTATIN [Concomitant]
  5. AZATHIOPRINE [Concomitant]
     Active Substance: AZATHIOPRINE
  6. AZITHROMYCIN TAB 250MG [Concomitant]
  7. BOTOX [Concomitant]
     Active Substance: ONABOTULINUMTOXINA
  8. CLONIDINE DIS 0.2/24HR [Concomitant]
  9. DESVENLAFAX TAB 100MG ER [Concomitant]
  10. FLUTICASONE [Concomitant]
     Active Substance: FLUTICASONE
  11. GABAPENTIN TAB 600MG [Concomitant]
  12. LAMOTRIGINE TAB 200MG [Concomitant]
  13. LINZESS CAP 145MCG [Concomitant]
  14. MEPERIDINE INJ 100MG/ML [Concomitant]
  15. MOUNJARO INJ 10MG/0.5 [Concomitant]
  16. MOUNJARO INJ 2.5/0.5 [Concomitant]
  17. MOUNJARO INJ 5MG/0.5 [Concomitant]
  18. MOUNJARO INJ 7.5/0.5 [Concomitant]
  19. ONDANSETRON INJ 4MG/2ML [Concomitant]
  20. OXYCOD/APAP [Concomitant]
  21. PREDNISONE TAB [Concomitant]
  22. RIZATRIPTAN [Concomitant]
  23. TOPIRAMATE [Concomitant]

REACTIONS (1)
  - Surgery [None]
